FAERS Safety Report 7618109-8 (Version None)
Quarter: 2011Q3

REPORT INFORMATION
  Report Type: 
  Country: None (occurrence: None)
  Receive Date: 20110718
  Receipt Date: 20110708
  Transmission Date: 20111222
  Serious: Yes (Hospitalization)
  Sender: FDA-Public Use
  Company Number: BR-US-EMD SERONO, INC.-7068911

PATIENT
  Sex: Female

DRUGS (3)
  1. REBIF [Suspect]
  2. ACETAMINOPHEN [Concomitant]
     Dosage: 4 TBL
  3. REBIF [Suspect]
     Indication: RELAPSING-REMITTING MULTIPLE SCLEROSIS
     Dates: start: 20110531

REACTIONS (10)
  - VISION BLURRED [None]
  - HEADACHE [None]
  - ARTHRALGIA [None]
  - FATIGUE [None]
  - DIZZINESS [None]
  - UNDERSENSING [None]
  - INJECTION SITE ERYTHEMA [None]
  - NAUSEA [None]
  - EXTRAOCULAR MUSCLE PARESIS [None]
  - DIPLOPIA [None]
